FAERS Safety Report 5972252-8 (Version None)
Quarter: 2008Q4

REPORT INFORMATION
  Report Type: 
  Country: None (occurrence: None)
  Receive Date: 20081201
  Receipt Date: 20071213
  Transmission Date: 20090506
  Serious: No
  Sender: FDA-Public Use
  Company Number: US-TEVA-165704USA

PATIENT
  Age: 40 Year
  Sex: Female

DRUGS (1)
  1. SALBUTAMOL SULFATE INHALATION, 0.09 MG [Suspect]
     Dosage: 2 PUFFS PRN FOR ABOUT 2 WEEKS
     Route: 055

REACTIONS (1)
  - BURNING SENSATION [None]
